FAERS Safety Report 13845049 (Version 5)
Quarter: 2017Q3

REPORT INFORMATION
  Report Type: Report from Study
  Country: IE (occurrence: IE)
  Receive Date: 20170808
  Receipt Date: 20170926
  Transmission Date: 20171127
  Serious: Yes (Other)
  Sender: FDA-Public Use
  Company Number: PHFR2017IE006388

PATIENT
  Age: 61 Year
  Sex: Male

DRUGS (2)
  1. ZYKADIA [Suspect]
     Active Substance: CERITINIB
     Indication: PRODUCT USED FOR UNKNOWN INDICATION
     Dosage: 450 MG, UNK
     Route: 048
     Dates: start: 20170102, end: 20170908
  2. INNOHEP [Suspect]
     Active Substance: TINZAPARIN SODIUM
     Indication: PRODUCT USED FOR UNKNOWN INDICATION
     Route: 065

REACTIONS (7)
  - Chest wall mass [Not Recovered/Not Resolved]
  - Prostatomegaly [Not Recovered/Not Resolved]
  - Dizziness [Not Recovered/Not Resolved]
  - Metastases to central nervous system [Not Recovered/Not Resolved]
  - Metastases to liver [Not Recovered/Not Resolved]
  - Urethral haemorrhage [Recovered/Resolved]
  - Rectal haemorrhage [Recovered/Resolved]

NARRATIVE: CASE EVENT DATE: 20170711
